FAERS Safety Report 7350006-8 (Version None)
Quarter: 2011Q1

REPORT INFORMATION
  Report Type: 
  Country: None (occurrence: None)
  Receive Date: 20110314
  Receipt Date: 20110307
  Transmission Date: 20110831
  Serious: Yes (Life-Threatening)
  Sender: FDA-Public Use
  Company Number: FR-ROCHE-764158

PATIENT
  Age: 47 Year
  Sex: Male

DRUGS (6)
  1. VALIUM [Suspect]
     Route: 048
     Dates: end: 20110103
  2. LEXOMIL [Suspect]
     Route: 048
     Dates: end: 20110103
  3. CLOZAPINE [Suspect]
     Route: 048
     Dates: end: 20110103
  4. ABILIFY [Suspect]
     Route: 048
     Dates: end: 20110103
  5. DEPAKOTE [Suspect]
     Route: 048
     Dates: end: 20110103
  6. ZYPREXA [Suspect]
     Route: 048
     Dates: end: 20110103

REACTIONS (4)
  - SHOCK [None]
  - PANCYTOPENIA [None]
  - POLYURIA [None]
  - COMA [None]
